FAERS Safety Report 9322493 (Version 2)
Quarter: 2013Q2

REPORT INFORMATION
  Report Type: Spontaneous
  Country: US (occurrence: US)
  Receive Date: 20130531
  Receipt Date: 20130610
  Transmission Date: 20140414
  Serious: Yes (Hospitalization)
  Sender: FDA-Public Use
  Company Number: PHHY2013US053437

PATIENT
  Age: 50 Year
  Sex: Female

DRUGS (3)
  1. ACETYLSALICYLIC ACID [Suspect]
     Dosage: 325 MG TOTAL FOR THE FIRST ATTEMPT
  2. ACETYLSALICYLIC ACID [Suspect]
     Dosage: 81 MG, BID
  3. IBUPROFEN [Suspect]

REACTIONS (12)
  - Chronic respiratory disease [Recovering/Resolving]
  - Sinusitis [Unknown]
  - Nasal congestion [Recovering/Resolving]
  - Rhinorrhoea [Recovering/Resolving]
  - Anosmia [Recovering/Resolving]
  - Purulent discharge [Recovering/Resolving]
  - Sneezing [Recovering/Resolving]
  - Nasal polyps [Recovering/Resolving]
  - Ocular sarcoidosis [Recovered/Resolved]
  - Eye swelling [Recovered/Resolved]
  - Exophthalmos [Recovered/Resolved]
  - Condition aggravated [Recovering/Resolving]
